FAERS Safety Report 12298766 (Version 1)
Quarter: 2016Q2

REPORT INFORMATION
  Report Type: Spontaneous
  Country: US (occurrence: None)
  Receive Date: 20160422
  Receipt Date: 20160422
  Transmission Date: 20160815
  Serious: Yes (Other)
  Sender: FDA-Public Use
  Company Number: None

PATIENT
  Age: 48 Year
  Sex: Male

DRUGS (1)
  1. METOPROLOL TARTRATE, 25 MG CITRON PHARMA [Suspect]
     Active Substance: METOPROLOL TARTRATE
     Route: 048
     Dates: start: 20160418, end: 20160421

REACTIONS (2)
  - Sexual dysfunction [None]
  - Dizziness [None]

NARRATIVE: CASE EVENT DATE: 20160420
